FAERS Safety Report 23427816 (Version 1)
Quarter: 2024Q1

REPORT INFORMATION
  Report Type: Spontaneous
  Country: US (occurrence: US)
  Receive Date: 20240122
  Receipt Date: 20240122
  Transmission Date: 20240410
  Serious: Yes (Other)
  Sender: FDA-Public Use
  Company Number: US-MYLANLABS-2024M1006512

PATIENT
  Age: 4 Decade
  Sex: Male

DRUGS (4)
  1. METHOTREXATE [Suspect]
     Active Substance: METHOTREXATE
     Indication: Birdshot chorioretinopathy
     Dosage: UNK
     Route: 065
     Dates: start: 201612, end: 2017
  2. METHOTREXATE [Suspect]
     Active Substance: METHOTREXATE
     Indication: Immunomodulatory therapy
  3. CYCLOSPORINE [Suspect]
     Active Substance: CYCLOSPORINE
     Indication: Birdshot chorioretinopathy
     Dosage: UNK
     Route: 065
     Dates: start: 201612, end: 2017
  4. CYCLOSPORINE [Suspect]
     Active Substance: CYCLOSPORINE
     Indication: Immunomodulatory therapy

REACTIONS (2)
  - Drug ineffective for unapproved indication [Unknown]
  - Off label use [Unknown]
